FAERS Safety Report 11931993 (Version 1)
Quarter: 2016Q1

REPORT INFORMATION
  Report Type: Spontaneous
  Country: US (occurrence: US)
  Receive Date: 20160120
  Receipt Date: 20160120
  Transmission Date: 20160526
  Serious: No
  Sender: FDA-Public Use
  Company Number: US-PFIZER INC-2015474113

PATIENT
  Age: 75 Year
  Sex: Female
  Weight: 73 kg

DRUGS (4)
  1. ESTRACE [Suspect]
     Active Substance: ESTRADIOL
     Indication: BLADDER NECK SUSPENSION
     Dosage: UNK (FINGER FULL EVERY THREE TO FOUR DAYS)
  2. SYNTHROID [Concomitant]
     Active Substance: LEVOTHYROXINE SODIUM
     Indication: THYROID DISORDER
     Dosage: UNK UNK, 1X/DAY
  3. PREMARIN [Suspect]
     Active Substance: ESTROGENS, CONJUGATED
     Indication: BLADDER NECK SUSPENSION
     Dosage: UNK (FINGER FULL EVERY THREE TO FOUR DAYS)
  4. AMLODIPINE [Concomitant]
     Active Substance: AMLODIPINE BESYLATE
     Indication: BLOOD PRESSURE ABNORMAL
     Dosage: 10 MG, 1X/DAY

REACTIONS (7)
  - Alopecia [Not Recovered/Not Resolved]
  - Rash pruritic [Unknown]
  - Product use issue [Unknown]
  - Dermatitis [Unknown]
  - Rash [Not Recovered/Not Resolved]
  - Rash erythematous [Unknown]
  - Erythema [Unknown]
